FAERS Safety Report 15693650 (Version 1)
Quarter: 2018Q4

REPORT INFORMATION
  Report Type: Spontaneous
  Country: ES (occurrence: ES)
  Receive Date: 20181206
  Receipt Date: 20181206
  Transmission Date: 20190205
  Serious: Yes (Death, Hospitalization)
  Sender: FDA-Public Use
  Company Number: ES-ROCHE-2225061

PATIENT
  Age: 64 Year
  Sex: Male

DRUGS (20)
  1. CAPECITABINE. [Suspect]
     Active Substance: CAPECITABINE
     Indication: RECTOSIGMOID CANCER STAGE IV
     Route: 065
  2. 5-FU [Suspect]
     Active Substance: FLUOROURACIL
     Indication: COLORECTAL CANCER METASTATIC
     Dosage: 780 MG
     Route: 040
     Dates: start: 20141125, end: 20141125
  3. BEVACIZUMAB. [Suspect]
     Active Substance: BEVACIZUMAB
     Indication: RECTOSIGMOID CANCER STAGE IV
     Route: 065
  4. LIPOSOMAL IRINOTECAN [Suspect]
     Active Substance: IRINOTECAN HYDROCHLORIDE
     Indication: OFF LABEL USE
     Route: 065
  5. FOLINIC ACID [Suspect]
     Active Substance: LEUCOVORIN
     Indication: METASTASES TO LIVER
     Route: 065
  6. AFLIBERCEPT [Suspect]
     Active Substance: AFLIBERCEPT
     Indication: COLORECTAL CANCER METASTATIC
     Route: 041
     Dates: start: 20141125
  7. CETUXIMAB. [Concomitant]
     Active Substance: CETUXIMAB
     Route: 065
  8. FOLINIC ACID [Suspect]
     Active Substance: LEUCOVORIN
     Indication: RECTOSIGMOID CANCER STAGE IV
  9. LIPOSOMAL IRINOTECAN [Suspect]
     Active Substance: IRINOTECAN HYDROCHLORIDE
     Indication: RECTOSIGMOID CANCER STAGE IV
     Dosage: 350 MG
     Route: 041
     Dates: start: 20141125
  10. 5-FU [Suspect]
     Active Substance: FLUOROURACIL
     Indication: RECTOSIGMOID CANCER STAGE IV
     Route: 041
     Dates: start: 20150113
  11. AFLIBERCEPT [Suspect]
     Active Substance: AFLIBERCEPT
     Indication: RECTOSIGMOID CANCER STAGE IV
     Route: 041
     Dates: start: 20150113
  12. LEUCOVORIN. [Suspect]
     Active Substance: LEUCOVORIN
     Indication: COLORECTAL CANCER METASTATIC
     Dosage: 780 MG
     Route: 041
     Dates: start: 20141125
  13. LIDOCAINE. [Concomitant]
     Active Substance: LIDOCAINE
     Route: 065
  14. LORAZEPAM. [Concomitant]
     Active Substance: LORAZEPAM
     Route: 065
  15. OXALIPLATIN. [Concomitant]
     Active Substance: OXALIPLATIN
     Route: 065
  16. OMEPRAZOLE. [Concomitant]
     Active Substance: OMEPRAZOLE
     Route: 065
  17. LIPOSOMAL IRINOTECAN [Suspect]
     Active Substance: IRINOTECAN HYDROCHLORIDE
     Indication: COLORECTAL CANCER METASTATIC
  18. FLUOROURACIL. [Suspect]
     Active Substance: FLUOROURACIL
     Indication: METASTASES TO LIVER
     Route: 065
  19. AFLIBERCEPT [Suspect]
     Active Substance: AFLIBERCEPT
     Indication: METASTASES TO LIVER
     Route: 065
  20. CALCIUM FOLINATE [Suspect]
     Active Substance: LEUCOVORIN CALCIUM
     Indication: RECTOSIGMOID CANCER STAGE IV
     Route: 065

REACTIONS (28)
  - Tenderness [Fatal]
  - Blood lactic acid increased [Fatal]
  - Tachycardia [Fatal]
  - Neutropenia [Recovered/Resolved]
  - Intentional product use issue [Unknown]
  - Proteus infection [Fatal]
  - Klebsiella infection [Fatal]
  - Chills [Fatal]
  - Prothrombin level decreased [Fatal]
  - Induration [Fatal]
  - Neutrophilia [Fatal]
  - Off label use [Unknown]
  - Coagulopathy [Fatal]
  - Blood creatine phosphokinase increased [Fatal]
  - Urinary tract infection [Recovered/Resolved]
  - Epistaxis [Recovered/Resolved]
  - Thrombocytopenia [Recovered/Resolved]
  - Hypotension [Fatal]
  - C-reactive protein increased [Fatal]
  - Inflammation [Fatal]
  - Clostridial infection [Fatal]
  - Leukocytosis [Fatal]
  - Renal failure [Fatal]
  - Blood creatinine increased [Fatal]
  - Pyrexia [Fatal]
  - Fournier^s gangrene [Fatal]
  - Erythema [Fatal]
  - Candida infection [Fatal]

NARRATIVE: CASE EVENT DATE: 20150125
